FAERS Safety Report 26115659 (Version 1)
Quarter: 2025Q4

REPORT INFORMATION
  Report Type: Spontaneous
  Country: US (occurrence: US)
  Receive Date: 20251203
  Receipt Date: 20251203
  Transmission Date: 20260118
  Serious: No
  Sender: ABBVIE
  Company Number: US-ABBVIE-6573574

PATIENT
  Age: 64 Year
  Sex: Male
  Weight: 59.874 kg

DRUGS (1)
  1. HUMIRA [Suspect]
     Active Substance: ADALIMUMAB
     Indication: Rheumatoid arthritis
     Route: 058
     Dates: start: 2025

REACTIONS (4)
  - Injection site haemorrhage [Unknown]
  - Injection site haemorrhage [Recovered/Resolved]
  - Injection site haemorrhage [Recovered/Resolved]
  - Device defective [Not Recovered/Not Resolved]

NARRATIVE: CASE EVENT DATE: 20251114
